FAERS Safety Report 14730119 (Version 2)
Quarter: 2018Q2

REPORT INFORMATION
  Report Type: Spontaneous
  Country: US (occurrence: US)
  Receive Date: 20180406
  Receipt Date: 20180418
  Transmission Date: 20180711
  Serious: Yes (Hospitalization)
  Sender: FDA-Public Use
  Company Number: US-MITSUBISHI TANABE PHARMA CORPORATION-MPE2018-0006236

PATIENT
  Sex: Male

DRUGS (2)
  1. RADICAVA [Suspect]
     Active Substance: EDARAVONE
     Indication: AMYOTROPHIC LATERAL SCLEROSIS
     Route: 042
  2. GAS-X [Concomitant]
     Active Substance: DIMETHICONE
     Route: 065

REACTIONS (1)
  - Hospitalisation [Not Recovered/Not Resolved]
